FAERS Safety Report 6291993-9 (Version None)
Quarter: 2009Q3

REPORT INFORMATION
  Report Type: 
  Country: None (occurrence: None)
  Receive Date: 20090729
  Receipt Date: 20090721
  Transmission Date: 20100115
  Serious: Yes (Death, Hospitalization)
  Sender: FDA-Public Use
  Company Number: MPS1-1000243

PATIENT
  Age: 9 Year
  Sex: Female
  Weight: 18.8 kg

DRUGS (4)
  1. ALDURAZYME [Suspect]
     Indication: MUCOPOLYSACCHARIDOSIS
     Dosage: 11.6 MG, QW, INTRAVENOUS
     Route: 042
     Dates: start: 20030828, end: 20090623
  2. ALBUTEROL [Concomitant]
  3. PREVACID [Concomitant]
  4. MUCINEX [Concomitant]

REACTIONS (5)
  - BRADYCARDIA [None]
  - CARDIAC DISORDER [None]
  - CARDIO-RESPIRATORY ARREST [None]
  - RESPIRATORY DISTRESS [None]
  - VIRAL UPPER RESPIRATORY TRACT INFECTION [None]
